FAERS Safety Report 5044165-X (Version None)
Quarter: 2006Q3

REPORT INFORMATION
  Report Type: 
  Country: None (occurrence: None)
  Receive Date: 20060706
  Receipt Date: 20060621
  Transmission Date: 20061208
  Serious: Yes (Life-Threatening, Hospitalization)
  Sender: FDA-Public Use
  Company Number: JP-MERCK-0606USA05695

PATIENT
  Age: 75 Year
  Sex: Male

DRUGS (11)
  1. STROMECTOL [Suspect]
     Indication: ACARODERMATITIS
     Route: 048
     Dates: start: 20060616, end: 20060601
  2. ALLEGRA [Concomitant]
     Indication: ACARODERMATITIS
     Route: 048
     Dates: start: 20060616
  3. TAKEPRON [Concomitant]
     Route: 048
     Dates: start: 20050901
  4. BASEN [Concomitant]
     Route: 048
     Dates: start: 20050901
  5. SYMMETREL [Concomitant]
     Route: 048
     Dates: start: 20050901
  6. PROCYLIN [Concomitant]
     Route: 048
     Dates: start: 20050901
  7. GLYBURIDE [Concomitant]
     Route: 048
     Dates: start: 20050901
  8. HARNAL [Concomitant]
     Route: 048
     Dates: start: 20050901
  9. ASTAT [Concomitant]
     Route: 061
  10. MYSER [Concomitant]
     Route: 061
  11. EURAX-H [Concomitant]
     Route: 061

REACTIONS (5)
  - BLOOD PRESSURE DECREASED [None]
  - DEPRESSED LEVEL OF CONSCIOUSNESS [None]
  - DIABETES MELLITUS [None]
  - HYPERSENSITIVITY [None]
  - SHOCK [None]
